FAERS Safety Report 7791660-6 (Version None)
Quarter: 2011Q4

REPORT INFORMATION
  Report Type: 
  Country: None (occurrence: None)
  Receive Date: 20111003
  Receipt Date: 20110920
  Transmission Date: 20120403
  Serious: Yes (Life-Threatening, Other)
  Sender: FDA-Public Use
  Company Number: JP-JNJFOC-20110700933

PATIENT
  Sex: Female
  Weight: 45 kg

DRUGS (11)
  1. REMICADE [Suspect]
     Route: 042
     Dates: start: 20110610
  2. LORCAM [Suspect]
     Indication: PRODUCT USED FOR UNKNOWN INDICATION
     Route: 048
  3. RHEUMATREX [Concomitant]
     Indication: RHEUMATOID ARTHRITIS
     Route: 048
  4. LOXONIN [Concomitant]
     Indication: RHEUMATOID ARTHRITIS
     Route: 048
  5. REMICADE [Suspect]
     Route: 042
     Dates: start: 20110824
  6. FOLIC ACID [Concomitant]
     Indication: PROPHYLAXIS
     Route: 048
  7. PREDNISOLONE [Concomitant]
     Indication: PROPHYLAXIS
     Route: 042
     Dates: start: 20110824
  8. LANSOPRAZOLE [Concomitant]
     Indication: PROPHYLAXIS
     Route: 048
  9. PREDNISOLONE [Concomitant]
     Indication: RHEUMATOID ARTHRITIS
     Route: 048
  10. REMICADE [Suspect]
     Indication: RHEUMATOID ARTHRITIS
     Route: 042
  11. ISOTONIC SODIUM CHLORIDE SOLUTION [Concomitant]
     Route: 042
     Dates: start: 20110824

REACTIONS (7)
  - CHILLS [None]
  - STOMATITIS [None]
  - PYREXIA [None]
  - THROMBOCYTOPENIC PURPURA [None]
  - GLOSSITIS [None]
  - INFUSION RELATED REACTION [None]
  - PLATELET COUNT DECREASED [None]
